FAERS Safety Report 4497966-0 (Version None)
Quarter: 2004Q4

REPORT INFORMATION
  Report Type: 
  Country: None (occurrence: None)
  Receive Date: 20041105
  Receipt Date: 20041026
  Transmission Date: 20050328
  Serious: Yes (Hospitalization)
  Sender: FDA-Public Use
  Company Number: 2004083012

PATIENT
  Sex: Female

DRUGS (4)
  1. BENADRYL [Suspect]
     Indication: PRURITUS
     Dosage: 2 TAB EVERY 4 TO 6 HOURS EVERY
  2. OXYCODONE HCL [Concomitant]
  3. VICODIN [Concomitant]
  4. COMTREX (CHLORPHENAMINE MALEATE, DEXTROMETHORPHAN HYDROBROMIDE, PARACE [Concomitant]

REACTIONS (9)
  - ANAPHYLACTIC SHOCK [None]
  - COELIAC DISEASE [None]
  - DEPRESSED LEVEL OF CONSCIOUSNESS [None]
  - DIARRHOEA [None]
  - DRUG WITHDRAWAL SYNDROME [None]
  - HEADACHE [None]
  - LABORATORY TEST ABNORMAL [None]
  - NAUSEA [None]
  - VOMITING [None]
